FAERS Safety Report 15978721 (Version 8)
Quarter: 2019Q4

REPORT INFORMATION
  Report Type: Report from Study
  Country: None (occurrence: US)
  Receive Date: 20190219
  Receipt Date: 20191015
  Transmission Date: 20200122
  Serious: Yes (Hospitalization, Other)
  Sender: FDA-Public Use
  Company Number: US-ABBVIE-19K-163-2667898-00

PATIENT
  Age: 76 Year
  Sex: Male
  Weight: 124.4 kg

DRUGS (6)
  1. HUMIRA [Suspect]
     Active Substance: ADALIMUMAB
     Indication: CROHN^S DISEASE
     Route: 058
  2. HUMIRA [Suspect]
     Active Substance: ADALIMUMAB
     Route: 058
  3. HUMIRA [Suspect]
     Active Substance: ADALIMUMAB
     Route: 058
  4. HUMIRA [Suspect]
     Active Substance: ADALIMUMAB
     Route: 058
  5. CAPTOPRIL. [Concomitant]
     Active Substance: CAPTOPRIL
     Indication: PRODUCT USED FOR UNKNOWN INDICATION
     Route: 065
  6. HUMIRA [Suspect]
     Active Substance: ADALIMUMAB
     Route: 058

REACTIONS (31)
  - Musculoskeletal pain [Unknown]
  - Sleep apnoea syndrome [Unknown]
  - Skin papilloma [Unknown]
  - Umbilical hernia [Unknown]
  - Bursitis [Recovering/Resolving]
  - Toe operation [Unknown]
  - Knee arthroplasty [Unknown]
  - Haematochezia [Unknown]
  - Knee operation [Unknown]
  - Shoulder operation [Unknown]
  - Arthropathy [Unknown]
  - Carpal tunnel syndrome [Recovered/Resolved]
  - Spinal operation [Recovered/Resolved]
  - Knee arthroplasty [Unknown]
  - Procedural pain [Not Recovered/Not Resolved]
  - Cough [Unknown]
  - Pain in extremity [Unknown]
  - Limb operation [Unknown]
  - Mobility decreased [Unknown]
  - Neck pain [Unknown]
  - Pain [Unknown]
  - Cataract [Unknown]
  - Shoulder arthroplasty [Unknown]
  - Limb operation [Unknown]
  - Dysphonia [Unknown]
  - Sinus disorder [Unknown]
  - Finger deformity [Unknown]
  - Oropharyngeal pain [Unknown]
  - Chest pain [Unknown]
  - Arthritis [Unknown]
  - Crohn^s disease [Unknown]

NARRATIVE: CASE EVENT DATE: 2002
